FAERS Safety Report 7362387 (Version 3)
Quarter: 2014Q1

REPORT INFORMATION
  Report Type: Spontaneous
  Country: US (occurrence: US)
  Receive Date: 20100422
  Receipt Date: 20140106
  Transmission Date: 20141002
  Serious: Yes (Other)
  Sender: FDA-Public Use
  Company Number: US-BAYER-201019607NA

PATIENT
  Age: 16 Year
  Sex: Female
  Weight: 68 kg

DRUGS (20)
  1. YAZ [Suspect]
     Route: 048
     Dates: start: 2004
  2. OCELLA [Suspect]
     Route: 048
     Dates: start: 2004
  3. YASMIN [Suspect]
     Indication: PREMENSTRUAL SYNDROME
     Dosage: UNK
     Route: 048
     Dates: start: 2003, end: 2009
  4. ADDERALL XR [Concomitant]
     Dosage: UNK
     Dates: start: 2006
  5. LEXAPRO [Concomitant]
  6. CONCERTA [Concomitant]
  7. ALBUTEROL INHALER [Concomitant]
  8. CLARITIN [Concomitant]
  9. TRILEPTAL [Concomitant]
  10. CLONIDINE [Concomitant]
  11. RITALIN [Concomitant]
  12. TRAZODONE [Concomitant]
  13. PROZAC [Concomitant]
  14. NEURONTIN [Concomitant]
  15. LITHIUM [Concomitant]
  16. VISTARIL [Concomitant]
  17. BIAXIN [Concomitant]
  18. RISPERDAL [Concomitant]
     Dosage: 1 MG, BID
  19. REMERON [Concomitant]
     Dosage: 75 MG, UNK
  20. KLONOPIN [Concomitant]
     Dosage: 0.5 MG, BID

REACTIONS (10)
  - Gallbladder disorder [Unknown]
  - Pulmonary embolism [Unknown]
  - Deep vein thrombosis [Unknown]
  - Myocardial infarction [Unknown]
  - Cerebrovascular accident [Unknown]
  - Cholecystitis chronic [Unknown]
  - Mental disorder [None]
  - Dyspnoea [Unknown]
  - Back pain [Unknown]
  - Pain in extremity [Unknown]
